FAERS Safety Report 5371404-8 (Version None)
Quarter: 2007Q2

REPORT INFORMATION
  Report Type: 
  Country: None (occurrence: None)
  Receive Date: 20070622
  Receipt Date: 20070613
  Transmission Date: 20071010
  Serious: Yes (Hospitalization)
  Sender: FDA-Public Use
  Company Number: 2007BI008991

PATIENT
  Age: 75 Year
  Sex: Male

DRUGS (8)
  1. AVONEX [Suspect]
     Indication: MULTIPLE SCLEROSIS
     Dosage: 30 UG;QW; IM
     Route: 030
     Dates: start: 20000404
  2. AVONEX [Suspect]
     Indication: MULTIPLE SCLEROSIS
     Dosage: 30 UG;QW; IM
     Route: 030
  3. ZOCOR [Concomitant]
  4. BACLOFEN [Concomitant]
  5. ISORDIL [Concomitant]
  6. ASPIRIN [Concomitant]
  7. MAXZIDE [Concomitant]
  8. NAMENDA [Concomitant]

REACTIONS (2)
  - HEART VALVE REPLACEMENT [None]
  - MYOCARDIAL INFARCTION [None]
